FAERS Safety Report 19911951 (Version 3)
Quarter: 2022Q3

REPORT INFORMATION
  Report Type: Spontaneous
  Country: JP (occurrence: JP)
  Receive Date: 20211004
  Receipt Date: 20220714
  Transmission Date: 20221027
  Serious: No
  Sender: FDA-Public Use
  Company Number: JP-GSKCHJ-JPCH2021JPN063582AA

PATIENT

DRUGS (2)
  1. NICOTINELL [Suspect]
     Active Substance: NICOTINE
     Indication: Smoking cessation therapy
     Dosage: UNK
     Route: 050
  2. NICOTINELL [Suspect]
     Active Substance: NICOTINE
     Dosage: 30 MG, QD
     Route: 050
     Dates: start: 20210831

REACTIONS (2)
  - Dermatitis contact [Recovered/Resolved]
  - Product use issue [Unknown]

NARRATIVE: CASE EVENT DATE: 20210831
